FAERS Safety Report 9558832 (Version 1)
Quarter: 2013Q3

REPORT INFORMATION
  Report Type: Report from Study
  Country: GB (occurrence: GB)
  Receive Date: 20130926
  Receipt Date: 20130926
  Transmission Date: 20140515
  Serious: Yes (Other)
  Sender: FDA-Public Use
  Company Number: GB-ROCHE-1280986

PATIENT
  Age: 72 Year
  Sex: Female

DRUGS (3)
  1. RANIBIZUMAB [Suspect]
     Indication: PRODUCT USED FOR UNKNOWN INDICATION
     Dosage: DOSE: 0.5 MG/ 0.05 ML?THE PATIENT RECEIVED LAST DOSE OF LUCENTIS ON 13/JUL/2013
     Route: 050
     Dates: start: 20080729
  2. RANIBIZUMAB [Suspect]
     Dosage: DOSE: 0.5 MG/0.05 ML
     Route: 050
     Dates: start: 20130713
  3. RANIBIZUMAB [Suspect]
     Dosage: DOSE: 0.5 MG/0.05 ML
     Route: 050
     Dates: start: 20130903

REACTIONS (1)
  - Retinal haemorrhage [Recovered/Resolved]
